FAERS Safety Report 19405812 (Version 1)
Quarter: 2021Q2

REPORT INFORMATION
  Report Type: Other
  Country: ES (occurrence: ES)
  Receive Date: 20210611
  Receipt Date: 20210611
  Transmission Date: 20210717
  Serious: Yes (Other)
  Sender: FDA-Public Use
  Company Number: ES-APOTEX-2021AP013731

PATIENT
  Age: 48 Year
  Sex: Female

DRUGS (3)
  1. SEROXAT FILM?COATED TABLET [Suspect]
     Active Substance: PAROXETINE HYDROCHLORIDE
     Indication: DEPRESSION
     Dosage: 20 MILLIGRAM (ONE BY ONE)
     Route: 048
     Dates: start: 20090501
  2. SEROXAT FILM?COATED TABLET [Suspect]
     Active Substance: PAROXETINE HYDROCHLORIDE
     Indication: FIBROMYALGIA
  3. SEROXAT FILM?COATED TABLET [Suspect]
     Active Substance: PAROXETINE HYDROCHLORIDE
     Indication: ANXIETY

REACTIONS (11)
  - Anxiety [Unknown]
  - Suicidal ideation [Unknown]
  - Muscle spasms [Unknown]
  - Psychotic disorder [Unknown]
  - Derealisation [Unknown]
  - Diarrhoea [Unknown]
  - Migraine [Unknown]
  - Paranoia [Unknown]
  - Dizziness [Unknown]
  - Amnesia [Unknown]
  - Insomnia [Unknown]
